FAERS Safety Report 6723494-5 (Version None)
Quarter: 2010Q2

REPORT INFORMATION
  Report Type: 
  Country: None (occurrence: None)
  Receive Date: 20100513
  Receipt Date: 20100506
  Transmission Date: 20101027
  Serious: Yes (Hospitalization)
  Sender: FDA-Public Use
  Company Number: FR-JNJFOC-20100501812

PATIENT
  Age: 47 Year
  Sex: Male

DRUGS (5)
  1. TAVANIC [Suspect]
     Indication: PNEUMONIA PNEUMOCOCCAL
     Route: 048
  2. LOVENOX [Suspect]
     Indication: PROPHYLAXIS
     Route: 058
  3. LOVENOX [Suspect]
     Route: 058
  4. ESOMEPRAZOLE [Suspect]
     Indication: PROPHYLAXIS
     Route: 048
  5. CEFTRIAXONE [Suspect]
     Indication: PNEUMONIA PNEUMOCOCCAL
     Route: 065

REACTIONS (2)
  - SEPSIS [None]
  - THROMBOCYTOPENIA [None]
